FAERS Safety Report 18744954 (Version 1)
Quarter: 2021Q1

REPORT INFORMATION
  Report Type: Spontaneous
  Country: BR (occurrence: BR)
  Receive Date: 20210115
  Receipt Date: 20210115
  Transmission Date: 20210419
  Serious: Yes (Other)
  Sender: FDA-Public Use
  Company Number: NVSC2021BR006593

PATIENT
  Age: 70 Year
  Sex: Female

DRUGS (1)
  1. TRAVATAN [Suspect]
     Active Substance: TRAVOPROST
     Indication: PRODUCT USED FOR UNKNOWN INDICATION
     Dosage: UNK (STARTED FROM MORE THAN 10 YEARS)
     Route: 065

REACTIONS (9)
  - Rhinorrhoea [Unknown]
  - Dyspnoea [Unknown]
  - Cardiac disorder [Unknown]
  - Blood pressure fluctuation [Unknown]
  - COVID-19 [Unknown]
  - Hypoaesthesia [Unknown]
  - Diabetes mellitus [Unknown]
  - Malaise [Unknown]
  - Fear [Unknown]

NARRATIVE: CASE EVENT DATE: 202002
